FAERS Safety Report 14779481 (Version 1)
Quarter: 2018Q2

REPORT INFORMATION
  Report Type: Spontaneous
  Country: US (occurrence: US)
  Receive Date: 20180412
  Receipt Date: 20180412
  Transmission Date: 20180711
  Serious: Yes (Other)
  Sender: FDA-Public Use
  Company Number: None

PATIENT
  Age: 71 Year
  Sex: Female
  Weight: 64.35 kg

DRUGS (22)
  1. ISOSORBIDE. [Concomitant]
     Active Substance: ISOSORBIDE
  2. TRADJENTA [Concomitant]
     Active Substance: LINAGLIPTIN
  3. MOTRIN [Concomitant]
     Active Substance: IBUPROFEN
  4. NITROSTAT [Concomitant]
     Active Substance: NITROGLYCERIN
  5. CALCIUM + D [Concomitant]
     Active Substance: CALCIUM\VITAMIN D
  6. CARVEDILOL. [Concomitant]
     Active Substance: CARVEDILOL
  7. DICLOFENAC [Concomitant]
     Active Substance: DICLOFENAC
  8. LANTUS [Concomitant]
     Active Substance: INSULIN GLARGINE
  9. PERCOCET [Concomitant]
     Active Substance: ACETAMINOPHEN\OXYCODONE HYDROCHLORIDE
  10. LEVOTHYROXINE. [Concomitant]
     Active Substance: LEVOTHYROXINE
  11. LIPITOR [Concomitant]
     Active Substance: ATORVASTATIN CALCIUM
  12. METFORMIN [Concomitant]
     Active Substance: METFORMIN HYDROCHLORIDE
  13. ZETIA [Concomitant]
     Active Substance: EZETIMIBE
  14. FENTANYL. [Concomitant]
     Active Substance: FENTANYL
  15. LYRICA [Concomitant]
     Active Substance: PREGABALIN
  16. NORVASC [Concomitant]
     Active Substance: AMLODIPINE BESYLATE
  17. ONDANSETRON [Concomitant]
     Active Substance: ONDANSETRON
  18. TRAMADOL. [Concomitant]
     Active Substance: TRAMADOL
  19. HCTZ [Concomitant]
     Active Substance: HYDROCHLOROTHIAZIDE
  20. TARCEVA [Suspect]
     Active Substance: ERLOTINIB HYDROCHLORIDE
     Indication: LUNG NEOPLASM MALIGNANT
     Route: 048
     Dates: start: 20171214, end: 20180411
  21. LISINOPRIL. [Concomitant]
     Active Substance: LISINOPRIL
  22. OMNIPAQUE [Concomitant]
     Active Substance: IOHEXOL

REACTIONS (1)
  - Disease progression [None]
